FAERS Safety Report 8936103 (Version 1)
Quarter: 2012Q4

REPORT INFORMATION
  Report Type: 
  Country: US (occurrence: US)
  Receive Date: 20121130
  Receipt Date: 20121130
  Transmission Date: 20130627
  Serious: No
  Sender: FDA-Public Use
  Company Number: US-ABBOTT-12P-163-0979309-00

PATIENT
  Sex: Male
  Weight: 92.16 kg

DRUGS (9)
  1. ANDROGEL [Suspect]
     Indication: BLOOD TESTOSTERONE DECREASED
     Dates: start: 201205
  2. NEXIUM [Concomitant]
     Indication: GASTROOESOPHAGEAL REFLUX DISEASE
  3. LOVAZA [Concomitant]
     Indication: BLOOD CHOLESTEROL INCREASED
  4. ASPIRIN [Concomitant]
     Indication: CARDIAC DISORDER
  5. SAW PALMETTO [Concomitant]
     Indication: GENERAL PHYSICAL HEALTH DETERIORATION
  6. OSTEO BI-FLEX [Concomitant]
     Indication: ARTHROPATHY
  7. DIOVAN [Concomitant]
     Indication: HYPERTENSION
  8. FOLIC ACID [Concomitant]
     Indication: GENERAL PHYSICAL HEALTH DETERIORATION
  9. CALCIUM [Concomitant]
     Indication: BLOOD CALCIUM DECREASED

REACTIONS (1)
  - Testicular atrophy [Not Recovered/Not Resolved]
